FAERS Safety Report 10243148 (Version 1)
Quarter: 2014Q2

REPORT INFORMATION
  Report Type: Spontaneous
  Country: US (occurrence: None)
  Receive Date: 20140616
  Receipt Date: 20140616
  Transmission Date: 20141212
  Serious: Yes (Hospitalization, Other)
  Sender: FDA-Public Use
  Company Number: None

PATIENT
  Age: 60 Year
  Sex: Male
  Weight: 83.92 kg

DRUGS (4)
  1. ENBREL [Suspect]
     Indication: RHEUMATOID ARTHRITIS
     Dosage: 50 MG ONCE PER WEEK SUBCUTANEOUS
     Route: 058
     Dates: start: 20131022, end: 20140507
  2. PREDNISONE [Concomitant]
  3. SINGULAIR [Concomitant]
  4. FOLIC ACID [Concomitant]

REACTIONS (5)
  - Malaise [None]
  - Asthenia [None]
  - Movement disorder [None]
  - Asthenia [None]
  - Suffocation feeling [None]
